FAERS Safety Report 7359781-X (Version None)
Quarter: 2011Q1

REPORT INFORMATION
  Report Type: 
  Country: None (occurrence: None)
  Receive Date: 20110317
  Receipt Date: 20110307
  Transmission Date: 20110831
  Serious: Yes (Other)
  Sender: FDA-Public Use
  Company Number: US-CELGENEUS-163-50794-11030906

PATIENT
  Sex: Female

DRUGS (1)
  1. VIDAZA [Suspect]
     Route: 065

REACTIONS (1)
  - ABDOMINAL ABSCESS [None]
